FAERS Safety Report 23408553 (Version 3)
Quarter: 2024Q1

REPORT INFORMATION
  Report Type: Spontaneous
  Country: US (occurrence: US)
  Receive Date: 20240117
  Receipt Date: 20240125
  Transmission Date: 20240410
  Serious: No
  Sender: FDA-Public Use
  Company Number: US-OPELLA-2024OHG001441

PATIENT
  Sex: Male

DRUGS (1)
  1. DULCOLAX (BISACODYL) [Suspect]
     Active Substance: BISACODYL
     Indication: Product used for unknown indication
     Dosage: HE TAKES IT EVERY 4 TO 5 DAYS AND TAKES 2 OR 3 TABLETS EACH TIME
     Dates: start: 2022

REACTIONS (3)
  - Burning sensation [Recovered/Resolved]
  - Off label use [Unknown]
  - Product use issue [Unknown]
